FAERS Safety Report 24814598 (Version 1)
Quarter: 2025Q1

REPORT INFORMATION
  Report Type: Spontaneous
  Country: US (occurrence: None)
  Receive Date: 20250106
  Receipt Date: 20250106
  Transmission Date: 20250409
  Serious: No
  Sender: FDA-CTU
  Company Number: None

PATIENT
  Age: 32 Year
  Sex: Female
  Weight: 55.35 kg

DRUGS (1)
  1. MOTION SICKNESS RELIEF (DIMENHYDRINATE) [Suspect]
     Active Substance: DIMENHYDRINATE
     Indication: Motion sickness
     Route: 048
     Dates: start: 20250105, end: 20250105

REACTIONS (3)
  - Palpitations [None]
  - Tremor [None]
  - Dizziness [None]

NARRATIVE: CASE EVENT DATE: 20250105
